FAERS Safety Report 25438650 (Version 5)
Quarter: 2025Q4

REPORT INFORMATION
  Report Type: Spontaneous
  Country: US (occurrence: US)
  Receive Date: 20250616
  Receipt Date: 20251226
  Transmission Date: 20260118
  Serious: No
  Sender: SANOFI AVENTIS
  Company Number: US-SA-2025SA169167

PATIENT
  Age: 62 Year
  Sex: Female
  Weight: 49.89 kg

DRUGS (21)
  1. DUPIXENT [Suspect]
     Active Substance: DUPILUMAB
     Indication: Dermatitis atopic
     Dosage: 300 MG, QOW
     Route: 058
  2. TYVASO [Suspect]
     Active Substance: TREPROSTINIL
     Dosage: UNK
  3. PANTOPRAZOLE SODIUM [Concomitant]
     Active Substance: PANTOPRAZOLE SODIUM
     Dosage: UNK
  4. NYSTATIN [Concomitant]
     Active Substance: NYSTATIN
     Dosage: UNK
  5. MEGESTROL ACETATE [Concomitant]
     Active Substance: MEGESTROL ACETATE
     Dosage: UNK
  6. HYDROXYZINE HYDROCHLORIDE [Concomitant]
     Active Substance: HYDROXYZINE HYDROCHLORIDE
     Dosage: UNK
  7. DESOXIMETASONE [Concomitant]
     Active Substance: DESOXIMETASONE
     Dosage: UNK
  8. NORVASC [Concomitant]
     Active Substance: AMLODIPINE BESYLATE
     Dosage: UNK
  9. VALTREX [Concomitant]
     Active Substance: VALACYCLOVIR HYDROCHLORIDE
     Dosage: UNK
  10. ALLOPURINOL [Concomitant]
     Active Substance: ALLOPURINOL
     Dosage: UNK
  11. LYRICA [Concomitant]
     Active Substance: PREGABALIN
     Dosage: UNK
  12. OXYGEN [Concomitant]
     Active Substance: OXYGEN
     Dosage: UNK
  13. UPTRAVI [Concomitant]
     Active Substance: SELEXIPAG
     Dosage: UNK
  14. DIGOXIN [Concomitant]
     Active Substance: DIGOXIN
     Dosage: UNK
  15. TADALAFIL [Concomitant]
     Active Substance: TADALAFIL
     Dosage: UNK
  16. PFIZER-BIONTECH COVID-19 VACCINE [Concomitant]
     Active Substance: TOZINAMERAN
     Dosage: UNK
  17. OPSUMIT [Concomitant]
     Active Substance: MACITENTAN
  18. ACETAMINOPHEN [Concomitant]
     Active Substance: ACETAMINOPHEN
     Dosage: UNK
  19. VALACYCLOVIR [Concomitant]
     Active Substance: VALACYCLOVIR HYDROCHLORIDE
     Dosage: UNK
  20. AMLODIPINE BESYLATE [Concomitant]
     Active Substance: AMLODIPINE BESYLATE
     Dosage: UNK
  21. SPIRONOLACTONE [Concomitant]
     Active Substance: SPIRONOLACTONE
     Dosage: UNK

REACTIONS (9)
  - Productive cough [Recovered/Resolved]
  - Taste disorder [Unknown]
  - Oral candidiasis [Unknown]
  - Cough [Unknown]
  - Dry mouth [Unknown]
  - Decreased appetite [Unknown]
  - Weight decreased [Unknown]
  - Headache [Recovered/Resolved]
  - Oxygen saturation abnormal [Unknown]

NARRATIVE: CASE EVENT DATE: 20250101
